FAERS Safety Report 12573189 (Version 1)
Quarter: 2016Q3

REPORT INFORMATION
  Report Type: Spontaneous
  Country: US (occurrence: US)
  Receive Date: 20160720
  Receipt Date: 20160720
  Transmission Date: 20161109
  Serious: No
  Sender: FDA-Public Use
  Company Number: US-BAYER-2016-137931

PATIENT
  Age: 94 Year
  Sex: Female
  Weight: 52.61 kg

DRUGS (2)
  1. AMOXICILLIN. [Concomitant]
     Active Substance: AMOXICILLIN
  2. CLARITIN [Suspect]
     Active Substance: LORATADINE
     Dosage: 1 DF, QD
     Route: 048
     Dates: start: 20160711

REACTIONS (4)
  - Somnolence [Recovered/Resolved]
  - Drug ineffective [None]
  - Product use issue [None]
  - Somnolence [Recovered/Resolved]

NARRATIVE: CASE EVENT DATE: 20160711
